FAERS Safety Report 8030515-9 (Version None)
Quarter: 2012Q1

REPORT INFORMATION
  Report Type: 
  Country: None (occurrence: None)
  Receive Date: 20120109
  Receipt Date: 20120105
  Transmission Date: 20120608
  Serious: Yes (Hospitalization, Other)
  Sender: FDA-Public Use
  Company Number: FR-ROCHE-1009344

PATIENT
  Sex: Male
  Weight: 70 kg

DRUGS (6)
  1. PANTOPRAZOLE [Concomitant]
  2. REPAGLINIDE [Concomitant]
  3. AMLODIPINE BESYLATE [Concomitant]
  4. RAMIPRIL [Concomitant]
  5. JANUVIA [Concomitant]
  6. RANIBIZUMAB [Suspect]
     Indication: DIABETIC RETINAL OEDEMA
     Dosage: DOSE: 10 MG/ML
     Route: 050
     Dates: start: 20110804, end: 20111013

REACTIONS (2)
  - DIABETES MELLITUS [None]
  - INFARCTION [None]
